FAERS Safety Report 7394938-3 (Version None)
Quarter: 2011Q2

REPORT INFORMATION
  Report Type: 
  Country: None (occurrence: None)
  Receive Date: 20110405
  Receipt Date: 20110330
  Transmission Date: 20111010
  Serious: No
  Sender: FDA-Public Use
  Company Number: US-PFIZER INC-2011071214

PATIENT
  Sex: Male
  Weight: 81.6 kg

DRUGS (3)
  1. TIKOSYN [Suspect]
     Indication: ATRIAL FIBRILLATION
     Dosage: UNK, 2X/DAY
     Route: 048
     Dates: start: 20101201
  2. COUMADIN [Concomitant]
     Dosage: UNK
  3. RANITIDINE [Concomitant]
     Dosage: UNK

REACTIONS (5)
  - OROPHARYNGEAL PAIN [None]
  - DYSPNOEA [None]
  - MALAISE [None]
  - HEADACHE [None]
  - RHINORRHOEA [None]
